FAERS Safety Report 5516777-8 (Version None)
Quarter: 2007Q4

REPORT INFORMATION
  Report Type: 
  Country: None (occurrence: None)
  Receive Date: 20071114
  Receipt Date: 20070521
  Transmission Date: 20080405
  Serious: No
  Sender: FDA-Public Use
  Company Number: A0651500A

PATIENT
  Age: 70 Year
  Sex: Male

DRUGS (1)
  1. COMMIT [Suspect]
     Indication: DRUG USE FOR UNKNOWN INDICATION

REACTIONS (5)
  - DYSPEPSIA [None]
  - FEELING COLD [None]
  - HYPERTENSION [None]
  - INTENTIONAL DRUG MISUSE [None]
  - PALPITATIONS [None]
